FAERS Safety Report 12815942 (Version 1)
Quarter: 2016Q4

REPORT INFORMATION
  Report Type: Report from Study
  Country: US (occurrence: US)
  Receive Date: 20161006
  Receipt Date: 20161006
  Transmission Date: 20170207
  Serious: Yes (Other)
  Sender: FDA-Public Use
  Company Number: US-AMGEN-USASL2016056317

PATIENT
  Age: 61 Year
  Sex: Female

DRUGS (2)
  1. PROLIA [Suspect]
     Active Substance: DENOSUMAB
     Indication: OSTEOPENIA
  2. PROLIA [Suspect]
     Active Substance: DENOSUMAB
     Indication: OSTEOARTHRITIS
     Dosage: UNK
     Route: 065

REACTIONS (5)
  - Vitamin D abnormal [Unknown]
  - Off label use [Unknown]
  - Malabsorption [Unknown]
  - Herpes zoster [Unknown]
  - Pain [Unknown]

NARRATIVE: CASE EVENT DATE: 201505
